FAERS Safety Report 6440845-X (Version None)
Quarter: 2009Q4

REPORT INFORMATION
  Report Type: 
  Country: None (occurrence: None)
  Receive Date: 20091116
  Receipt Date: 20091013
  Transmission Date: 20100525
  Serious: Yes (Hospitalization)
  Sender: FDA-Public Use
  Company Number: JP-JNJFOC-20091103887

PATIENT
  Age: 18 Year
  Sex: Male

DRUGS (4)
  1. REMICADE [Suspect]
     Indication: JUVENILE ARTHRITIS
     Route: 042
     Dates: start: 20040101
  2. METHOTREXATE [Suspect]
     Indication: JUVENILE ARTHRITIS
  3. PREDNISOLONE [Concomitant]
     Indication: JUVENILE ARTHRITIS
  4. ASPIRIN [Concomitant]
     Indication: JUVENILE ARTHRITIS

REACTIONS (1)
  - GERM CELL CANCER [None]
